FAERS Safety Report 7889916-1 (Version None)
Quarter: 2011Q4

REPORT INFORMATION
  Report Type: 
  Country: None (occurrence: None)
  Receive Date: 20111103
  Receipt Date: 20111026
  Transmission Date: 20120403
  Serious: Yes (Other)
  Sender: FDA-Public Use
  Company Number: US-US-EMD SERONO, INC.-7016230

PATIENT
  Sex: Female

DRUGS (1)
  1. REBIF [Suspect]
     Indication: MULTIPLE SCLEROSIS
     Route: 058
     Dates: start: 20030810

REACTIONS (8)
  - MULTIPLE SCLEROSIS [None]
  - GAIT DISTURBANCE [None]
  - VEIN DISORDER [None]
  - THROMBOANGIITIS OBLITERANS [None]
  - PAIN IN EXTREMITY [None]
  - INJECTION SITE MASS [None]
  - CARDIOVASCULAR INSUFFICIENCY [None]
  - TINEA PEDIS [None]
